FAERS Safety Report 6464985-4 (Version None)
Quarter: 2009Q4

REPORT INFORMATION
  Report Type: 
  Country: None (occurrence: None)
  Receive Date: 20091123
  Receipt Date: 20091106
  Transmission Date: 20100525
  Serious: Yes (Other)
  Sender: FDA-Public Use
  Company Number: 09-AUR-09100

PATIENT
  Age: 37 Year
  Sex: Female

DRUGS (8)
  1. PAROXETINE HCL [Suspect]
     Indication: DEPRESSED MOOD
     Dosage: 20-40MG
     Dates: start: 19970429
  2. DIAZEPAM [Concomitant]
  3. DIOVAN [Concomitant]
  4. EFFEXOR XR [Concomitant]
  5. INDERAL LA [Concomitant]
  6. PROPRANOLOL [Concomitant]
  7. VITAMIN TAB [Concomitant]
  8. ST JOHNS WORT [Concomitant]

REACTIONS (55)
  - AGITATION [None]
  - AGORAPHOBIA [None]
  - ALCOHOL ABUSE [None]
  - ALCOHOL WITHDRAWAL SYNDROME [None]
  - ALOPECIA [None]
  - ANXIETY [None]
  - BANKRUPTCY [None]
  - CARDIAC FAILURE [None]
  - CONDITION AGGRAVATED [None]
  - CONGESTIVE CARDIOMYOPATHY [None]
  - DEATH OF RELATIVE [None]
  - DEPRESSED MOOD [None]
  - DEPRESSION [None]
  - DIVORCED [None]
  - DIZZINESS [None]
  - DRUG EXPOSURE DURING PREGNANCY [None]
  - DRUG HYPERSENSITIVITY [None]
  - DRY SKIN [None]
  - ECONOMIC PROBLEM [None]
  - ECZEMA [None]
  - EMOTIONAL DISTRESS [None]
  - FAMILY STRESS [None]
  - FATIGUE [None]
  - FEAR [None]
  - HAEMORRHAGIC DIATHESIS [None]
  - HEART RATE INCREASED [None]
  - HYPERCHOLESTEROLAEMIA [None]
  - HYPERTENSION [None]
  - INJURY [None]
  - IRRITABILITY [None]
  - MARITAL PROBLEM [None]
  - MULTIPLE INJURIES [None]
  - NAUSEA [None]
  - OBESITY [None]
  - PAIN OF SKIN [None]
  - PALPITATIONS [None]
  - PANIC ATTACK [None]
  - PANIC REACTION [None]
  - PARANOIA [None]
  - PHOTOSENSITIVITY REACTION [None]
  - PREGNANCY [None]
  - PSYCHIATRIC SYMPTOM [None]
  - PURPURA [None]
  - RASH ERYTHEMATOUS [None]
  - RASH PRURITIC [None]
  - SELF ESTEEM DECREASED [None]
  - SLEEP DISORDER [None]
  - SOCIAL AVOIDANT BEHAVIOUR [None]
  - SOCIAL PHOBIA [None]
  - STRESS [None]
  - SUICIDAL IDEATION [None]
  - TENSION HEADACHE [None]
  - UNEVALUABLE EVENT [None]
  - VASCULITIS [None]
  - WITHDRAWAL SYNDROME [None]
